FAERS Safety Report 10264936 (Version 1)
Quarter: 2014Q2

REPORT INFORMATION
  Report Type: Spontaneous
  Country: US (occurrence: US)
  Receive Date: 20140627
  Receipt Date: 20140627
  Transmission Date: 20141212
  Serious: Yes (Hospitalization, Other)
  Sender: FDA-Public Use
  Company Number: US-PFIZER INC-2014176744

PATIENT
  Age: 66 Year
  Sex: Male

DRUGS (6)
  1. XELJANZ [Suspect]
     Indication: RHEUMATOID ARTHRITIS
     Dosage: 5 MG, 2X/DAY (TAKE 1 TABLET BY MOUTH)
     Route: 048
     Dates: end: 201402
  2. LOVASTATIN [Concomitant]
     Dosage: 40 MG, UNK
  3. METOPROLOL SUCCINATE [Concomitant]
     Dosage: 25 MG, UNK
  4. ASPIRIN [Concomitant]
     Dosage: 325 MG, UNK
  5. FELODIPINE [Concomitant]
     Dosage: 10 MG, UNK
  6. VITAMIN C [Concomitant]
     Dosage: 500 MG, UNK

REACTIONS (2)
  - Diverticulitis [Recovered/Resolved]
  - Drug ineffective [Unknown]
